FAERS Safety Report 5036944-X (Version None)
Quarter: 2006Q2

REPORT INFORMATION
  Report Type: 
  Country: None (occurrence: None)
  Receive Date: 20060628
  Receipt Date: 20060622
  Transmission Date: 20061013
  Serious: Yes (Other)
  Sender: FDA-Public Use
  Company Number: FR-AVENTIS-200612259FR

PATIENT
  Age: 63 Year
  Sex: Female

DRUGS (2)
  1. LOVENOX [Suspect]
     Indication: THROMBOSIS PROPHYLAXIS
     Route: 058
     Dates: start: 20060601
  2. LOVENOX [Suspect]
     Indication: FEMUR FRACTURE
     Route: 058
     Dates: start: 20060601

REACTIONS (1)
  - THROMBOCYTHAEMIA [None]
